FAERS Safety Report 14185318 (Version 1)
Quarter: 2017Q4

REPORT INFORMATION
  Report Type: Spontaneous
  Country: US (occurrence: US)
  Receive Date: 20171113
  Receipt Date: 20171113
  Transmission Date: 20180321
  Serious: No
  Sender: FDA-Public Use
  Company Number: US-ASTRAZENECA-2017SF13052

PATIENT
  Sex: Male

DRUGS (1)
  1. BYDUREON [Suspect]
     Active Substance: EXENATIDE
     Route: 058

REACTIONS (10)
  - Vertigo [Unknown]
  - Wrong technique in device usage process [Unknown]
  - Hunger [Unknown]
  - Injection site pain [Unknown]
  - Renal impairment [Unknown]
  - Cataract [Unknown]
  - Weight decreased [Unknown]
  - Drug tolerance [Unknown]
  - Incorrect dose administered [Unknown]
  - Product quality issue [Unknown]
